FAERS Safety Report 19919647 (Version 2)
Quarter: 2021Q4

REPORT INFORMATION
  Report Type: Spontaneous
  Country: GB (occurrence: GB)
  Receive Date: 20211005
  Receipt Date: 20211204
  Transmission Date: 20220303
  Serious: Yes (Other)
  Sender: FDA-Public Use
  Company Number: None

PATIENT
  Age: 77 Year
  Sex: Female
  Weight: 53.97 kg

DRUGS (1)
  1. SERTRALINE [Suspect]
     Active Substance: SERTRALINE HYDROCHLORIDE
     Indication: Ill-defined disorder
     Dosage: 25MG
     Route: 048
     Dates: start: 20210405, end: 20210923

REACTIONS (10)
  - Restlessness [Unknown]
  - Medication error [Unknown]
  - Insomnia [Unknown]
  - Urinary retention [Unknown]
  - Back pain [Unknown]
  - Throat tightness [Unknown]
  - Confusional state [Unknown]
  - Agitation [Unknown]
  - Anxiety [Unknown]
  - Aggression [Unknown]

NARRATIVE: CASE EVENT DATE: 20210405
